FAERS Safety Report 4435733-4 (Version None)
Quarter: 2004Q3

REPORT INFORMATION
  Report Type: 
  Country: None (occurrence: None)
  Receive Date: 20040826
  Receipt Date: 20040812
  Transmission Date: 20050211
  Serious: No
  Sender: FDA-Public Use
  Company Number: 430003L04FRA

PATIENT
  Age: 28 Year
  Sex: Female

DRUGS (2)
  1. NOVANTRONE [Suspect]
     Indication: MULTIPLE SCLEROSIS
     Dosage: 120 MG
  2. METHOTREXATE [Suspect]
     Indication: MULTIPLE SCLEROSIS
     Dosage: 500 MG, 1 IN 1 DAYS

REACTIONS (1)
  - ACUTE PROMYELOCYTIC LEUKAEMIA [None]
